FAERS Safety Report 8887788 (Version 2)
Quarter: 2012Q4

REPORT INFORMATION
  Report Type: 
  Country: JP (occurrence: JP)
  Receive Date: 20121106
  Receipt Date: 20121219
  Transmission Date: 20130627
  Serious: Yes (Other)
  Sender: FDA-Public Use
  Company Number: JP-ELI_LILLY_AND_COMPANY-JP201210008177

PATIENT
  Age: 76 Year
  Sex: Female

DRUGS (2)
  1. GEMZAR [Suspect]
     Indication: GALLBLADDER CANCER STAGE IV
     Dosage: UNK
     Route: 042
     Dates: start: 2008
  2. GEMZAR [Suspect]
     Dosage: 1000 mg/m2, UNK
     Route: 042

REACTIONS (2)
  - Subdural haematoma [Unknown]
  - Cardiac failure [Unknown]
